FAERS Safety Report 11656873 (Version 1)
Quarter: 2015Q4

REPORT INFORMATION
  Report Type: Spontaneous
  Country: VN (occurrence: VN)
  Receive Date: 20151023
  Receipt Date: 20151023
  Transmission Date: 20160304
  Serious: Yes (Life-Threatening)
  Sender: FDA-Public Use
  Company Number: VN-GUERBET LLC-1043331

PATIENT
  Age: 47 Year
  Sex: Male
  Weight: 60 kg

DRUGS (1)
  1. HEXABRIX [Suspect]
     Active Substance: IOXAGLATE MEGLUMINE\IOXAGLATE SODIUM
     Indication: COMPUTERISED TOMOGRAM ABDOMEN
     Route: 042
     Dates: start: 20150904, end: 20150904

REACTIONS (6)
  - Rash erythematous [Recovered/Resolved]
  - Thyroid pain [Recovered/Resolved]
  - Dyspnoea [Recovered/Resolved]
  - Pruritus generalised [Recovered/Resolved]
  - Lacrimation increased [Recovered/Resolved]
  - Rhinorrhoea [Recovered/Resolved]

NARRATIVE: CASE EVENT DATE: 20150904
